FAERS Safety Report 12839731 (Version 1)
Quarter: 2016Q4

REPORT INFORMATION
  Report Type: Spontaneous
  Country: US (occurrence: US)
  Receive Date: 20161012
  Receipt Date: 20161012
  Transmission Date: 20170207
  Serious: No
  Sender: FDA-Public Use
  Company Number: None

PATIENT
  Age: 66 Year
  Sex: Male

DRUGS (7)
  1. AMLODIPINE [Concomitant]
     Active Substance: AMLODIPINE BESYLATE
  2. CANASA [Concomitant]
     Active Substance: MESALAMINE
  3. AZITHROMYCIN ANHYDROUS. [Concomitant]
     Active Substance: AZITHROMYCIN ANHYDROUS
  4. LATANOPROST. [Concomitant]
     Active Substance: LATANOPROST
  5. TIMOLOL. [Concomitant]
     Active Substance: TIMOLOL
  6. MESALAMINE. [Concomitant]
     Active Substance: MESALAMINE
  7. HUMIRA [Suspect]
     Active Substance: ADALIMUMAB
     Indication: CROHN^S DISEASE
     Dosage: EVERY OTHER WEEK
     Route: 058
     Dates: start: 20160116

REACTIONS (3)
  - Pericarditis [None]
  - Myocardial infarction [None]
  - Ejection fraction decreased [None]

NARRATIVE: CASE EVENT DATE: 20160926
